FAERS Safety Report 8443762-9 (Version None)
Quarter: 2012Q2

REPORT INFORMATION
  Report Type: 
  Country: None (occurrence: None)
  Receive Date: 20120608
  Receipt Date: 20120605
  Transmission Date: 20120825
  Serious: Yes (Life-Threatening, Hospitalization)
  Sender: FDA-Public Use
  Company Number: 2012SP026244

PATIENT
  Age: 30 Year
  Sex: Female
  Weight: 70.7611 kg

DRUGS (1)
  1. IMPLANON [Suspect]
     Indication: CONTRACEPTION
     Dosage: 69 MG;; SBDE
     Route: 059
     Dates: start: 20120322, end: 20120420

REACTIONS (1)
  - PULMONARY OEDEMA [None]
